FAERS Safety Report 16140052 (Version 1)
Quarter: 2019Q2

REPORT INFORMATION
  Report Type: Spontaneous
  Country: US (occurrence: US)
  Receive Date: 20190401
  Receipt Date: 20190401
  Transmission Date: 20190711
  Serious: Yes (Other)
  Sender: FDA-Public Use
  Company Number: US-ROCHE-2293342

PATIENT
  Sex: Female
  Weight: 83.99 kg

DRUGS (1)
  1. XOLAIR [Suspect]
     Active Substance: OMALIZUMAB
     Indication: IDIOPATHIC URTICARIA
     Dosage: ONGOING: NO
     Route: 065
     Dates: start: 20190213, end: 20190222

REACTIONS (2)
  - Rash [Recovering/Resolving]
  - Angioedema [Recovering/Resolving]
